FAERS Safety Report 9889395 (Version 1)
Quarter: 2014Q1

REPORT INFORMATION
  Report Type: Spontaneous
  Country: US (occurrence: US)
  Receive Date: 20140211
  Receipt Date: 20140211
  Transmission Date: 20141002
  Serious: No
  Sender: FDA-Public Use
  Company Number: US-PURDUE-USA-2013-0103761

PATIENT
  Sex: Male

DRUGS (1)
  1. DRONABINOL CAPSULES [Suspect]
     Indication: ANTIEMETIC SUPPORTIVE CARE
     Dosage: 5 MG, SINGLE
     Route: 048
     Dates: start: 201306

REACTIONS (2)
  - Drug ineffective [Unknown]
  - Product physical issue [Unknown]
